FAERS Safety Report 9697563 (Version 1)
Quarter: 2013Q4

REPORT INFORMATION
  Report Type: Spontaneous
  Country: US (occurrence: US)
  Receive Date: 20131120
  Receipt Date: 20131120
  Transmission Date: 20140711
  Serious: Yes (Other)
  Sender: FDA-Public Use
  Company Number: US-ASTELLAS-2013US011876

PATIENT
  Age: 54 Year
  Sex: Female

DRUGS (2)
  1. MYRBETRIQ [Suspect]
     Indication: PRODUCT USED FOR UNKNOWN INDICATION
     Dosage: 25 MG, UID/QD
     Route: 048
     Dates: start: 201310
  2. MYRBETRIQ [Suspect]
     Dosage: 50 MG, UID/QD
     Route: 048

REACTIONS (2)
  - Drug ineffective [Unknown]
  - Bladder operation [Unknown]
